FAERS Safety Report 10061385 (Version 2)
Quarter: 2014Q2

REPORT INFORMATION
  Report Type: Spontaneous
  Country: PT (occurrence: PT)
  Receive Date: 20140407
  Receipt Date: 20140527
  Transmission Date: 20141212
  Serious: Yes (Other)
  Sender: FDA-Public Use
  Company Number: PT-JNJFOC-20140317630

PATIENT
  Age: 63 Year
  Sex: Female
  Weight: 50 kg

DRUGS (9)
  1. CAELYX [Suspect]
     Indication: OVARIAN CANCER STAGE III
     Route: 042
     Dates: start: 20140318
  2. CAELYX [Suspect]
     Indication: OVARIAN CANCER STAGE III
     Dosage: 2MG/ML
     Route: 042
     Dates: start: 20140307, end: 20140307
  3. AVASTIN [Concomitant]
     Indication: BREAST CANCER
     Route: 040
     Dates: start: 20140307
  4. RAMIPRIL [Concomitant]
     Indication: HYPERTENSION
     Dosage: 1.0
     Route: 048
  5. BISOPROLOL [Concomitant]
     Indication: HYPERTENSION
     Route: 048
  6. INDAPAMIDE [Concomitant]
     Indication: HYPERTENSION
     Route: 048
  7. ATORVASTATIN [Concomitant]
     Indication: HYPERCHOLESTEROLAEMIA
     Route: 048
  8. KAINEVER [Concomitant]
     Indication: ANXIETY
     Route: 048
  9. DEXAMETAZONA [Concomitant]
     Indication: PROPHYLAXIS
     Route: 048
     Dates: start: 20140307

REACTIONS (7)
  - Blood pressure increased [Recovered/Resolved]
  - Cough [Recovered/Resolved]
  - Back pain [Recovered/Resolved]
  - Photopsia [Recovered/Resolved]
  - Erythema [Recovered/Resolved]
  - Throat tightness [Recovered/Resolved]
  - Visual impairment [Recovered/Resolved]
